FAERS Safety Report 6458686-6 (Version None)
Quarter: 2009Q4

REPORT INFORMATION
  Report Type: 
  Country: None (occurrence: None)
  Receive Date: 20091120
  Receipt Date: 20091106
  Transmission Date: 20100525
  Serious: Yes (Hospitalization)
  Sender: FDA-Public Use
  Company Number: DSJ-2009-14729

PATIENT
  Age: 55 Year
  Sex: Female

DRUGS (2)
  1. OLMESARTAN MEDOXOMIL [Suspect]
     Indication: HYPERTENSION
     Dosage: 140 MG, PER ORAL
     Route: 048
  2. NORVASC [Suspect]
     Dosage: 140 MG, PER ORAL
     Route: 048

REACTIONS (3)
  - OVERDOSE [None]
  - SHOCK [None]
  - SUICIDE ATTEMPT [None]
